FAERS Safety Report 5814544-9 (Version None)
Quarter: 2008Q3

REPORT INFORMATION
  Report Type: 
  Country: None (occurrence: None)
  Receive Date: 20080718
  Receipt Date: 20080708
  Transmission Date: 20090109
  Serious: Yes (Hospitalization, Disabling)
  Sender: FDA-Public Use
  Company Number: ZA-NOVOPROD-273156

PATIENT
  Sex: Male
  Weight: 65 kg

DRUGS (13)
  1. NOVOSEVEN [Suspect]
     Indication: TRAUMATIC HAEMORRHAGE
     Dosage: 3 DOSES
     Route: 042
     Dates: start: 20080224, end: 20080224
  2. KEFZOL [Concomitant]
     Indication: PROPHYLAXIS
     Dosage: 1 G, UNK
     Route: 042
     Dates: start: 20080224
  3. MORPHINE [Concomitant]
     Indication: SEDATION
     Dosage: 2 MG, UNK
     Route: 042
     Dates: start: 20080224
  4. ADRENALINE                         /00003901/ [Concomitant]
     Indication: HYPOTENSION
     Dosage: 0.75-0.1
     Route: 042
     Dates: start: 20080224
  5. CYCLOKAPRON [Concomitant]
     Indication: HAEMORRHAGE
     Dosage: 500 MG, UNK
     Route: 042
     Dates: start: 20080224
  6. VITAMIN K TAB [Concomitant]
     Indication: VITAMIN SUPPLEMENTATION
     Dosage: 10 MG, UNK
     Route: 042
     Dates: start: 20080224
  7. PREMARIN [Concomitant]
     Dosage: 15 MG, UNK
     Route: 042
     Dates: start: 20080224
  8. LASIX [Concomitant]
     Indication: PULMONARY OEDEMA
     Dosage: 20 MG, UNK
     Route: 042
     Dates: start: 20080226
  9. PIPERACILLIN AND TAZOBACTAM [Concomitant]
     Indication: INFECTION PROPHYLAXIS
     Dosage: 4.5 G, QD
     Route: 042
     Dates: start: 20080226, end: 20080302
  10. ACETAMINOPHEN [Concomitant]
     Indication: PYREXIA
     Dosage: 1 G, QD
     Route: 050
     Dates: start: 20080226, end: 20080302
  11. DF118 [Concomitant]
     Indication: PAIN PROPHYLAXIS
     Dosage: 60 MG, QD
     Route: 050
     Dates: start: 20080227, end: 20080228
  12. DORMICUM                           /00036201/ [Concomitant]
     Indication: SEDATION
     Dosage: UNK, UNK
     Route: 042
     Dates: start: 20080228, end: 20080302
  13. DOBUTREX [Concomitant]
     Indication: HYPOTENSION
     Dosage: 5 UG/KG/MIN
     Route: 042
     Dates: start: 20080228, end: 20080228

REACTIONS (4)
  - HEPATIC FUNCTION ABNORMAL [None]
  - LEG AMPUTATION [None]
  - RENAL IMPAIRMENT [None]
  - SEPSIS [None]
